FAERS Safety Report 5504908-5 (Version None)
Quarter: 2007Q4

REPORT INFORMATION
  Report Type: 
  Country: None (occurrence: None)
  Receive Date: 20071102
  Receipt Date: 20071024
  Transmission Date: 20080405
  Serious: Yes (Other)
  Sender: FDA-Public Use
  Company Number: PHHO2007AR07019

PATIENT
  Age: 78 Year
  Sex: Female

DRUGS (2)
  1. ZELNORM [Suspect]
     Indication: CONSTIPATION
     Dosage: UNK, QD
     Route: 048
     Dates: start: 20010101
  2. HOMEOPATHIC PREPARATIONS [Concomitant]

REACTIONS (2)
  - INTESTINAL POLYP [None]
  - INTESTINAL POLYPECTOMY [None]
